FAERS Safety Report 4393742-8 (Version None)
Quarter: 2004Q3

REPORT INFORMATION
  Report Type: 
  Country: None (occurrence: None)
  Receive Date: 20040709
  Receipt Date: 20040628
  Transmission Date: 20050211
  Serious: Yes (Life-Threatening)
  Sender: FDA-Public Use
  Company Number: JP-GLAXOSMITHKLINE-B0337410A

PATIENT
  Age: 25 Year
  Sex: Female

DRUGS (7)
  1. PAXIL [Suspect]
     Indication: DEPRESSION
     Dosage: 20MG PER DAY
     Route: 048
  2. RESLIN [Suspect]
     Route: 048
  3. MYSLEE [Concomitant]
     Route: 048
  4. LORAZEPAM [Concomitant]
     Route: 048
  5. EVAMYL [Concomitant]
     Route: 048
  6. NAUZELIN [Concomitant]
     Route: 065
  7. RIKKUNSHITO [Concomitant]
     Route: 048

REACTIONS (2)
  - DRUG TOXICITY [None]
  - INTENTIONAL OVERDOSE [None]
